FAERS Safety Report 4351642-3 (Version None)
Quarter: 2004Q2

REPORT INFORMATION
  Report Type: 
  Country: None (occurrence: None)
  Receive Date: 20040429
  Receipt Date: 20040223
  Transmission Date: 20050107
  Serious: No
  Sender: FDA-Public Use
  Company Number: 2004-114371-NL

PATIENT
  Age: 44 Year
  Sex: Female
  Weight: 56.7 kg

DRUGS (3)
  1. NUVARING [Suspect]
     Indication: MENSTRUAL DISORDER
     Dosage: DF DAILY
     Dates: start: 20040125
  2. CELEXA [Concomitant]
  3. TOPAMAX [Concomitant]

REACTIONS (2)
  - MENORRHAGIA [None]
  - METRORRHAGIA [None]
